FAERS Safety Report 15772930 (Version 1)
Quarter: 2018Q4

REPORT INFORMATION
  Report Type: Spontaneous
  Country: ZA (occurrence: ZA)
  Receive Date: 20181228
  Receipt Date: 20181228
  Transmission Date: 20190205
  Serious: Yes (Other)
  Sender: FDA-Public Use
  Company Number: ZA-B.I. PHARMACEUTICALS,INC./RIDGEFIELD-2018-BI-061476

PATIENT
  Age: 32 Year
  Sex: Male

DRUGS (33)
  1. LEVOFLOX [Suspect]
     Active Substance: LEVOFLOXACIN
     Route: 065
     Dates: start: 20180906
  2. ISONIAZID. [Suspect]
     Active Substance: ISONIAZID
     Route: 065
     Dates: start: 20180820, end: 20180827
  3. EMTRICITABINE\TENOFOVIR DISOPROXIL FUMARATE [Concomitant]
     Active Substance: EMTRICITABINE\TENOFOVIR DISOPROXIL FUMARATE
     Indication: PRODUCT USED FOR UNKNOWN INDICATION
     Route: 065
     Dates: end: 20180831
  4. DELAMANID [Suspect]
     Active Substance: DELAMANID
     Route: 065
     Dates: start: 20180905
  5. LEVOFLOX [Suspect]
     Active Substance: LEVOFLOXACIN
     Route: 065
     Dates: start: 20180808, end: 20180828
  6. PZA [Suspect]
     Active Substance: PYRAZINAMIDE
     Indication: TUBERCULOSIS
     Route: 048
     Dates: start: 20180219, end: 20180724
  7. TERIZIDONE [Suspect]
     Active Substance: TERIZIDONE
     Route: 065
     Dates: start: 20180910
  8. DELAMANID [Suspect]
     Active Substance: DELAMANID
     Route: 065
     Dates: start: 20180802, end: 20180828
  9. CLOF (CLOFAZIMINE) [Suspect]
     Active Substance: CLOFAZIMINE
     Route: 065
     Dates: start: 20180813, end: 20180828
  10. CLOF (CLOFAZIMINE) [Suspect]
     Active Substance: CLOFAZIMINE
     Route: 065
     Dates: start: 20180909
  11. ISONIAZID. [Suspect]
     Active Substance: ISONIAZID
     Route: 065
     Dates: start: 20180913
  12. ETHIO (ETHIONAMIDE) [Suspect]
     Active Substance: ETHIONAMIDE
     Indication: TUBERCULOSIS
     Route: 048
     Dates: start: 20180219, end: 20180724
  13. PAS [Suspect]
     Active Substance: AMINOSALICYLIC ACID
     Route: 065
     Dates: start: 20180823, end: 20180827
  14. DELAMANID [Suspect]
     Active Substance: DELAMANID
     Indication: TUBERCULOSIS
     Route: 048
     Dates: start: 20180409, end: 20180724
  15. BDQ (BEDAQUILINE) [Suspect]
     Active Substance: BEDAQUILINE
     Indication: TUBERCULOSIS
     Route: 048
     Dates: start: 20180222, end: 20180724
  16. BDQ (BEDAQUILINE) [Suspect]
     Active Substance: BEDAQUILINE
     Route: 065
     Dates: start: 20180730, end: 20180819
  17. LZD (LINEZOLID) [Suspect]
     Active Substance: LINEZOLID
     Route: 048
     Dates: start: 20180222, end: 20180328
  18. PAS [Suspect]
     Active Substance: AMINOSALICYLIC ACID
     Indication: TUBERCULOSIS
     Route: 048
     Dates: start: 20180222, end: 20180724
  19. TERIZIDONE [Suspect]
     Active Substance: TERIZIDONE
     Route: 065
     Dates: start: 20180817, end: 20180828
  20. SLOW MAG [Concomitant]
     Active Substance: MAGNESIUM CHLORIDE
     Indication: PRODUCT USED FOR UNKNOWN INDICATION
  21. LZD (LINEZOLID) [Suspect]
     Active Substance: LINEZOLID
     Route: 065
     Dates: start: 20180907
  22. CLOF (CLOFAZIMINE) [Suspect]
     Active Substance: CLOFAZIMINE
     Indication: TUBERCULOSIS
     Route: 048
     Dates: start: 20180319, end: 20180724
  23. PAS [Suspect]
     Active Substance: AMINOSALICYLIC ACID
     Route: 065
     Dates: start: 20180915
  24. ISONIAZID. [Suspect]
     Active Substance: ISONIAZID
     Indication: TUBERCULOSIS
     Route: 048
     Dates: start: 20180219, end: 20180724
  25. PZA [Suspect]
     Active Substance: PYRAZINAMIDE
     Route: 065
     Dates: start: 20180815, end: 20180828
  26. NEVIRAPINE. [Suspect]
     Active Substance: NEVIRAPINE
     Indication: ANTIRETROVIRAL THERAPY
     Route: 065
     Dates: end: 20180831
  27. LZD (LINEZOLID) [Suspect]
     Active Substance: LINEZOLID
     Indication: TUBERCULOSIS
     Route: 048
     Dates: start: 20180422, end: 20180724
  28. LZD (LINEZOLID) [Suspect]
     Active Substance: LINEZOLID
     Route: 065
     Dates: start: 20180806, end: 20180828
  29. LEVOFLOX [Suspect]
     Active Substance: LEVOFLOXACIN
     Indication: TUBERCULOSIS
     Route: 048
     Dates: start: 20180220, end: 20180724
  30. PZA [Suspect]
     Active Substance: PYRAZINAMIDE
     Route: 065
     Dates: start: 20181111
  31. TERIZIDONE [Suspect]
     Active Substance: TERIZIDONE
     Indication: TUBERCULOSIS
     Route: 048
     Dates: start: 20180227, end: 20180714
  32. PYRIDOXIN [Concomitant]
     Active Substance: PYRIDOXINE
     Indication: PRODUCT USED FOR UNKNOWN INDICATION
     Route: 065
  33. FERROUS SULFATE. [Concomitant]
     Active Substance: FERROUS SULFATE
     Indication: PRODUCT USED FOR UNKNOWN INDICATION
     Route: 065

REACTIONS (2)
  - Deep vein thrombosis [Not Recovered/Not Resolved]
  - Seborrhoeic dermatitis [Recovered/Resolved]

NARRATIVE: CASE EVENT DATE: 20180507
